FAERS Safety Report 13297920 (Version 1)
Quarter: 2017Q1

REPORT INFORMATION
  Report Type: Report from Study
  Country: US (occurrence: US)
  Receive Date: 20170306
  Receipt Date: 20170306
  Transmission Date: 20170428
  Serious: Yes (Hospitalization)
  Sender: FDA-Public Use
  Company Number: PHHO2017US004325

PATIENT
  Age: 57 Year
  Sex: Male
  Weight: 70.25 kg

DRUGS (2)
  1. ERLOTINIB [Suspect]
     Active Substance: ERLOTINIB
     Indication: NEUROENDOCRINE TUMOUR
     Dosage: 150 MG, QD
     Route: 048
     Dates: start: 20090105, end: 20100105
  2. AFINITOR [Suspect]
     Active Substance: EVEROLIMUS
     Indication: NEUROENDOCRINE TUMOUR
     Dosage: 5 MG, QD
     Route: 048
     Dates: start: 20091109, end: 20100105

REACTIONS (3)
  - Hyponatraemia [Unknown]
  - Abdominal pain [Recovering/Resolving]
  - Thrombocytopenia [Unknown]

NARRATIVE: CASE EVENT DATE: 20100105
